FAERS Safety Report 6619179-6 (Version None)
Quarter: 2010Q1

REPORT INFORMATION
  Report Type: 
  Country: None (occurrence: None)
  Receive Date: 20100304
  Receipt Date: 20100304
  Transmission Date: 20100710
  Serious: Yes (Disabling)
  Sender: FDA-Public Use
  Company Number: None

PATIENT
  Age: 46 Year
  Sex: Female
  Weight: 71.2147 kg

DRUGS (3)
  1. TOPIRAMATE [Suspect]
     Indication: MIGRAINE
     Dosage: 1 TABLET 2X DAY PO
     Route: 048
     Dates: start: 20070101, end: 20100226
  2. TOPIRAMATE [Suspect]
  3. . [Concomitant]

REACTIONS (8)
  - ECONOMIC PROBLEM [None]
  - JOINT RANGE OF MOTION DECREASED [None]
  - MIDDLE INSOMNIA [None]
  - MUSCULOSKELETAL PAIN [None]
  - MUSCULOSKELETAL STIFFNESS [None]
  - PAIN [None]
  - PRODUCT SUBSTITUTION ISSUE [None]
  - SLEEP DISORDER [None]
